FAERS Safety Report 4430579-5 (Version None)
Quarter: 2004Q3

REPORT INFORMATION
  Report Type: 
  Country: None (occurrence: None)
  Receive Date: 20040818
  Receipt Date: 20040803
  Transmission Date: 20050211
  Serious: Yes (Death, Life-Threatening)
  Sender: FDA-Public Use
  Company Number: 2004-00133

PATIENT
  Age: 60 Year
  Sex: Female
  Weight: 85 kg

DRUGS (1)
  1. VELCADE [Suspect]
     Indication: MULTIPLE MYELOMA
     Dosage: 1.90 MG, IV BOLUS
     Route: 040
     Dates: end: 20040614

REACTIONS (7)
  - ANOXIA [None]
  - BLOOD CULTURE POSITIVE [None]
  - BRAIN DAMAGE [None]
  - CARDIAC ARREST [None]
  - PNEUMONIA [None]
  - PSEUDOMONAS INFECTION [None]
  - SEPTIC SHOCK [None]
